FAERS Safety Report 15825853 (Version 1)
Quarter: 2019Q1

REPORT INFORMATION
  Report Type: Spontaneous
  Country: JP (occurrence: JP)
  Receive Date: 20190115
  Receipt Date: 20190115
  Transmission Date: 20190417
  Serious: Yes (Hospitalization)
  Sender: FDA-Public Use
  Company Number: JP-BAYER-2018-235991

PATIENT
  Age: 71 Year
  Sex: Female

DRUGS (6)
  1. SELBEX [Concomitant]
     Active Substance: TEPRENONE
  2. CALFINA [Concomitant]
     Active Substance: ALFACALCIDOL
  3. WELLNARA [Suspect]
     Active Substance: ESTRADIOL\LEVONORGESTREL
     Indication: OSTEOPOROSIS POSTMENOPAUSAL
     Dosage: UNK
     Route: 048
     Dates: start: 20180108
  4. ASPARA-CA [Concomitant]
     Active Substance: CALCIUM ASPARTATE
  5. AMLODIN [Concomitant]
     Active Substance: AMLODIPINE BESYLATE
  6. BAYASPIRIN 100 MG [Suspect]
     Active Substance: ASPIRIN

REACTIONS (1)
  - Dizziness [Recovered/Resolved]

NARRATIVE: CASE EVENT DATE: 20181211
